FAERS Safety Report 9591414 (Version 1)
Quarter: 2013Q4

REPORT INFORMATION
  Report Type: Spontaneous
  Country: US (occurrence: US)
  Receive Date: 20131003
  Receipt Date: 20131003
  Transmission Date: 20140711
  Serious: No
  Sender: FDA-Public Use
  Company Number: US-AMGEN-USASP2012079845

PATIENT
  Sex: Female
  Weight: 72.56 kg

DRUGS (4)
  1. ENBREL [Suspect]
     Indication: RHEUMATOID ARTHRITIS
     Dosage: 50 MG, QWK
     Route: 058
  2. METOPROLOL [Concomitant]
     Dosage: 50 MG, UNK
  3. HYDROCHLOROTH [Concomitant]
     Dosage: 25 MG, UNK
  4. ORENCIA [Concomitant]
     Dosage: 125 MG/ML, UNK

REACTIONS (3)
  - Therapeutic response decreased [Unknown]
  - Fatigue [Unknown]
  - Swelling [Unknown]
